FAERS Safety Report 5192918-X (Version None)
Quarter: 2006Q4

REPORT INFORMATION
  Report Type: 
  Country: None (occurrence: None)
  Receive Date: 20061228
  Receipt Date: 20060215
  Transmission Date: 20070319
  Serious: No
  Sender: FDA-Public Use
  Company Number: US-UCBSA-8018742

PATIENT
  Age: 83 Year
  Sex: Male

DRUGS (25)
  1. FLONASE [Suspect]
     Indication: RHINITIS
     Dosage: 2SPR PER DAY
     Route: 045
     Dates: start: 20010101
  2. ZYRTEC [Suspect]
     Indication: RHINITIS
     Dates: start: 20010101
  3. GLYBURIDE [Concomitant]
  4. GLUCOPHAGE [Concomitant]
  5. ACTOS [Concomitant]
  6. LASIX [Concomitant]
  7. PREVACID [Concomitant]
  8. LOPID [Concomitant]
  9. TOPROL-XL [Concomitant]
  10. CARDIZEM [Concomitant]
  11. PAXIL CR [Concomitant]
  12. ASPIRIN [Concomitant]
  13. ACETAMINOPHEN [Concomitant]
  14. COLACE [Concomitant]
  15. OMEGA FISH OIL [Concomitant]
  16. ZETIA [Concomitant]
  17. CENTRUM SILVER [Concomitant]
  18. IRON [Concomitant]
  19. CITRUCEL [Concomitant]
  20. MAALOX FAST BLOCKER [Concomitant]
  21. TIMOPTIC [Concomitant]
  22. ALPHAGAN [Concomitant]
  23. LIDOCAINE [Concomitant]
  24. VIODOR [Concomitant]
  25. MUCINEX [Concomitant]

REACTIONS (2)
  - AGEUSIA [None]
  - ANOSMIA [None]
